FAERS Safety Report 9384650 (Version 2)
Quarter: 2013Q3

REPORT INFORMATION
  Report Type: Spontaneous
  Country: FR (occurrence: FR)
  Receive Date: 20130705
  Receipt Date: 20130717
  Transmission Date: 20140515
  Serious: Yes (Hospitalization)
  Sender: FDA-Public Use
  Company Number: FR-PFIZER INC-2013196355

PATIENT
  Age: 87 Year
  Sex: Female

DRUGS (8)
  1. ALDACTONE [Suspect]
     Indication: PRODUCT USED FOR UNKNOWN INDICATION
     Dosage: UNK
     Route: 048
     Dates: start: 201208, end: 20120911
  2. TRIATEC [Suspect]
     Indication: PRODUCT USED FOR UNKNOWN INDICATION
     Dosage: 2.5 MG, DAILY
     Route: 048
     Dates: start: 20120729
  3. CARDENSIEL [Suspect]
     Indication: PRODUCT USED FOR UNKNOWN INDICATION
     Dosage: 1.25 MG, DAILY
     Route: 048
     Dates: start: 20120729
  4. CARDENSIEL [Suspect]
     Dosage: 5 MG, DAILY
     Route: 048
     Dates: end: 20120911
  5. PREVISCAN [Concomitant]
     Dosage: UNK
  6. LASILIX [Concomitant]
     Dosage: UNK
  7. PARIET [Concomitant]
     Dosage: UNK
  8. MONO-TILDIEM [Concomitant]
     Dosage: UNK
     Dates: end: 20120729

REACTIONS (4)
  - Hypotension [Recovered/Resolved]
  - Bradycardia [Recovered/Resolved]
  - Bundle branch block left [Unknown]
  - Fall [Unknown]
